FAERS Safety Report 15245952 (Version 2)
Quarter: 2018Q3

REPORT INFORMATION
  Report Type: Spontaneous
  Country: GB (occurrence: GB)
  Receive Date: 20180806
  Receipt Date: 20180910
  Transmission Date: 20181010
  Serious: Yes (Hospitalization, Other)
  Sender: FDA-Public Use
  Company Number: GB-PFIZER INC-2018310946

PATIENT
  Age: 44 Year
  Sex: Female
  Weight: 49 kg

DRUGS (2)
  1. MISOPROSTOL. [Suspect]
     Active Substance: MISOPROSTOL
     Indication: ABORTION EARLY
     Dates: start: 20180609, end: 20180609
  2. MIFEPRISTONE LINEPHARMA [Suspect]
     Active Substance: MIFEPRISTONE
     Indication: ABORTION EARLY
     Dosage: 1 MG, 1X/DAY
     Dates: start: 20180609, end: 20180609

REACTIONS (2)
  - Retained products of conception [Recovering/Resolving]
  - Product use in unapproved indication [Unknown]

NARRATIVE: CASE EVENT DATE: 201806
